FAERS Safety Report 5583317-7 (Version None)
Quarter: 2008Q1

REPORT INFORMATION
  Report Type: 
  Country: None (occurrence: None)
  Receive Date: 20080107
  Receipt Date: 20071226
  Transmission Date: 20080703
  Serious: Yes (Other)
  Sender: FDA-Public Use
  Company Number: US-PFIZER INC-2007108238

PATIENT
  Sex: Female

DRUGS (7)
  1. LYRICA [Suspect]
     Indication: NEURALGIA
     Dates: start: 20071212, end: 20071225
  2. CELEBREX [Concomitant]
  3. DYNACIRC [Concomitant]
  4. PREVACID [Concomitant]
  5. PLETAL [Concomitant]
  6. ELAVIL [Concomitant]
  7. PERCOCET [Concomitant]

REACTIONS (9)
  - ASTHENIA [None]
  - CRYING [None]
  - DYSKINESIA [None]
  - JOINT SWELLING [None]
  - LIMB DISCOMFORT [None]
  - MUSCULOSKELETAL DISCOMFORT [None]
  - MYALGIA [None]
  - OEDEMA PERIPHERAL [None]
  - PAIN IN EXTREMITY [None]
